FAERS Safety Report 5227273-X (Version None)
Quarter: 2007Q1

REPORT INFORMATION
  Report Type: 
  Country: None (occurrence: None)
  Receive Date: 20070202
  Receipt Date: 20070129
  Transmission Date: 20070707
  Serious: Yes (Other)
  Sender: FDA-Public Use
  Company Number: FRWYE404129JAN07

PATIENT
  Sex: Female

DRUGS (10)
  1. GEMTUZUMAB OZOGAMICIN [Suspect]
     Indication: ACUTE MYELOID LEUKAEMIA RECURRENT
     Dosage: 10 MG
     Route: 042
     Dates: start: 20070113, end: 20070113
  2. NOVANTRONE [Concomitant]
     Indication: ACUTE MYELOID LEUKAEMIA RECURRENT
     Route: 042
     Dates: start: 20070110, end: 20070114
  3. ZOFRAN [Concomitant]
     Route: 042
     Dates: start: 20070109, end: 20070115
  4. ACYCLOVIR [Concomitant]
     Route: 042
     Dates: start: 20070115
  5. TIENAM [Concomitant]
     Route: 042
     Dates: start: 20070110, end: 20070126
  6. TRIFLUCAN [Concomitant]
     Dosage: 200 MG TOTAL DAILY
     Route: 048
     Dates: start: 20070109, end: 20070119
  7. INIPOMP [Concomitant]
     Route: 048
     Dates: start: 20070110, end: 20070124
  8. CHIBRO-CADRON [Concomitant]
     Route: 047
  9. ARACYTINE [Concomitant]
     Indication: ACUTE MYELOID LEUKAEMIA RECURRENT
     Route: 042
     Dates: start: 20070110, end: 20070114
  10. METOCLOPRAMIDE [Concomitant]
     Dosage: 6 VIALS TOTAL DAILY
     Route: 042
     Dates: start: 20070109, end: 20070118

REACTIONS (2)
  - REFRACTORINESS TO PLATELET TRANSFUSION [None]
  - VENOOCCLUSIVE LIVER DISEASE [None]
